FAERS Safety Report 5801067-6 (Version None)
Quarter: 2008Q3

REPORT INFORMATION
  Report Type: 
  Country: None (occurrence: None)
  Receive Date: 20080704
  Receipt Date: 20080627
  Transmission Date: 20090109
  Serious: Yes (Disabling)
  Sender: FDA-Public Use
  Company Number: GB-ELI_LILLY_AND_COMPANY-GB200801001478

PATIENT
  Sex: Male
  Weight: 80 kg

DRUGS (10)
  1. HUMALOG [Suspect]
     Indication: DIABETES MELLITUS
     Dosage: UNK, UNKNOWN
     Route: 030
     Dates: start: 20071107
  2. GLUCOPHAGE [Concomitant]
     Dosage: UNK, DAILY (1/D)
     Route: 048
  3. GLICLAZIDE [Concomitant]
     Dosage: UNK, DAILY (1/D)
     Route: 048
  4. NICORANDIL [Concomitant]
     Dosage: 20 MG, 2/D
     Route: 048
     Dates: start: 20071105
  5. PLAVIX [Concomitant]
     Dosage: UNK, DAILY (1/D)
     Route: 048
  6. ASPIRIN [Concomitant]
     Dosage: UNK, DAILY (1/D)
     Route: 048
  7. RAMIPRIL [Concomitant]
     Dosage: 5 MG, UNKNOWN
     Route: 065
  8. AMLODIPINE [Concomitant]
     Dosage: UNK, UNKNOWN
     Route: 065
  9. LOSARTAN [Concomitant]
     Dosage: UNK, UNKNOWN
     Route: 065
  10. BISOPROLOL FUMARATE [Concomitant]
     Dosage: UNK, UNKNOWN
     Route: 065

REACTIONS (1)
  - PANOPHTHALMITIS [None]
